FAERS Safety Report 5547626-X (Version None)
Quarter: 2007Q4

REPORT INFORMATION
  Report Type: 
  Country: None (occurrence: None)
  Receive Date: 20071211
  Receipt Date: 20071204
  Transmission Date: 20080405
  Serious: Yes (Other)
  Sender: FDA-Public Use
  Company Number: KR-BOEHRINGER INGELHEIM PHARMACEUTICALS, INC.-2007-DE-07210GD

PATIENT

DRUGS (5)
  1. TELMISARTAN [Suspect]
     Indication: HYPERTENSION
     Dosage: INITIAL DOSE 40 MG, DOSE DOUBLED DEPENDING ON BLOOD PRESSURE AND DIABETIC STATUS
  2. ASPIRIN [Concomitant]
  3. CLOPIDOGREL [Concomitant]
  4. ATORVASTATIN [Concomitant]
  5. SIROLIMUS [Concomitant]

REACTIONS (3)
  - CORONARY REVASCULARISATION [None]
  - MYOCARDIAL INFARCTION [None]
  - PERCUTANEOUS CORONARY INTERVENTION [None]
